FAERS Safety Report 20741982 (Version 1)
Quarter: 2022Q2

REPORT INFORMATION
  Report Type: Report from Study
  Country: US (occurrence: US)
  Receive Date: 20220423
  Receipt Date: 20220423
  Transmission Date: 20220721
  Serious: Yes (Hospitalization)
  Sender: FDA-Public Use
  Company Number: US-UCBSA-2022022390

PATIENT
  Age: 72 Year
  Sex: Male

DRUGS (2)
  1. LEVETIRACETAM [Suspect]
     Active Substance: LEVETIRACETAM
     Indication: Seizure
     Dosage: 500 MILLIGRAM, 2X/DAY (BID)
  2. LEVETIRACETAM [Suspect]
     Active Substance: LEVETIRACETAM
     Indication: Product used for unknown indication
     Dosage: 500MG UNK
     Dates: start: 2021

REACTIONS (5)
  - Generalised tonic-clonic seizure [Unknown]
  - Hip arthroplasty [Unknown]
  - Somnolence [Unknown]
  - Disturbance in attention [Unknown]
  - Inappropriate schedule of product administration [Unknown]

NARRATIVE: CASE EVENT DATE: 20211111
